FAERS Safety Report 6132972-1 (Version None)
Quarter: 2009Q1

REPORT INFORMATION
  Report Type: 
  Country: None (occurrence: None)
  Receive Date: 20090326
  Receipt Date: 20090318
  Transmission Date: 20090719
  Serious: Yes (Hospitalization)
  Sender: FDA-Public Use
  Company Number: JP-ABBOTT-09P-087-0499912-00

PATIENT
  Sex: Female

DRUGS (2)
  1. LEUPLIN FOR INJECTION KIT 3.75MG [Suspect]
     Indication: DRUG USE FOR UNKNOWN INDICATION
     Route: 058
     Dates: start: 20081220
  2. LEUPLIN FOR INJECTION KIT 3.75MG [Suspect]
     Dates: start: 20080927

REACTIONS (1)
  - MYOCARDIAL INFARCTION [None]
